FAERS Safety Report 5023958-9 (Version None)
Quarter: 2006Q2

REPORT INFORMATION
  Report Type: 
  Country: None (occurrence: None)
  Receive Date: 20060607
  Receipt Date: 20060527
  Transmission Date: 20061013
  Serious: No
  Sender: FDA-Public Use
  Company Number: US017675

PATIENT
  Age: 3 Year
  Sex: Male

DRUGS (1)
  1. ACTIQ [Suspect]
     Dosage: 1200 UG ONCE BUCCAL
     Route: 002
     Dates: start: 20060527, end: 20060527

REACTIONS (1)
  - ACCIDENTAL DRUG INTAKE BY CHILD [None]
